FAERS Safety Report 6414962-4 (Version None)
Quarter: 2009Q4

REPORT INFORMATION
  Report Type: 
  Country: None (occurrence: None)
  Receive Date: 20091026
  Receipt Date: 20090224
  Transmission Date: 20100525
  Serious: No
  Sender: FDA-Public Use
  Company Number: US-ABBOTT-09P-163-0559610-00

PATIENT
  Sex: Female
  Weight: 79.904 kg

DRUGS (6)
  1. LUPRON DEPOT [Suspect]
     Indication: ENDOMETRIOSIS
     Dosage: GIVES 3.75 MG
     Dates: start: 20070831, end: 20071031
  2. LUPRON DEPOT [Suspect]
     Indication: UTERINE LEIOMYOMA
  3. AYGESTIN [Concomitant]
     Indication: DRUG USE FOR UNKNOWN INDICATION
  4. AYGESTIN [Concomitant]
  5. ALLEGRA [Concomitant]
     Indication: DRUG USE FOR UNKNOWN INDICATION
  6. DIOVAN [Concomitant]
     Indication: BLOOD PRESSURE

REACTIONS (1)
  - METRORRHAGIA [None]
